FAERS Safety Report 25133790 (Version 2)
Quarter: 2025Q2

REPORT INFORMATION
  Report Type: Spontaneous
  Country: JP (occurrence: JP)
  Receive Date: 20250328
  Receipt Date: 20250423
  Transmission Date: 20250717
  Serious: Yes (Death, Life-Threatening, Hospitalization)
  Sender: MERCK SHARP & DOHME LLC
  Company Number: JP-MSD-M2024-43518

PATIENT
  Age: 73 Year
  Sex: Female
  Weight: 44.6 kg

DRUGS (3)
  1. KEYTRUDA [Suspect]
     Active Substance: PEMBROLIZUMAB
     Indication: Non-small cell lung cancer
     Dosage: DOSE DESCRIPTION : 200 MILLIGRAM, Q3W?DAILY DOSE : 9.4 MILLIGRAM?REGIMEN DOSE : 200  MILLIGRAM
     Route: 041
     Dates: start: 20240904, end: 20240904
  2. PACLITAXEL [Concomitant]
     Active Substance: PACLITAXEL
     Indication: Non-small cell lung cancer
     Route: 051
     Dates: start: 20240904, end: 20240918
  3. CARBOPLATIN [Concomitant]
     Active Substance: CARBOPLATIN
     Indication: Non-small cell lung cancer
     Route: 051
     Dates: start: 20240904, end: 20240904

REACTIONS (3)
  - Immune-mediated myocarditis [Fatal]
  - Immune-mediated myasthenia gravis [Fatal]
  - Immune-mediated myositis [Fatal]

NARRATIVE: CASE EVENT DATE: 20241001
